FAERS Safety Report 10613094 (Version 2)
Quarter: 2015Q1

REPORT INFORMATION
  Report Type: Spontaneous
  Country: FR (occurrence: FR)
  Receive Date: 20141128
  Receipt Date: 20150107
  Transmission Date: 20150720
  Serious: Yes (Other)
  Sender: FDA-Public Use
  Company Number: FR-ROCHE-1497579

PATIENT
  Age: 66 Year
  Sex: Female

DRUGS (1)
  1. ZELBORAF [Suspect]
     Active Substance: VEMURAFENIB
     Indication: METASTATIC MALIGNANT MELANOMA
     Route: 065
     Dates: start: 20130221

REACTIONS (3)
  - Herpes virus infection [Recovered/Resolved]
  - Solar dermatitis [Recovered/Resolved]
  - Xeroderma [Recovered/Resolved]
